FAERS Safety Report 11837478 (Version 1)
Quarter: 2015Q4

REPORT INFORMATION
  Report Type: Spontaneous
  Country: KR (occurrence: KR)
  Receive Date: 20151215
  Receipt Date: 20151215
  Transmission Date: 20160305
  Serious: Yes (Hospitalization)
  Sender: FDA-Public Use
  Company Number: PHHY2015KR160129

PATIENT
  Age: 25 Year
  Sex: Female

DRUGS (1)
  1. MEDROXYPROGESTERONE [Suspect]
     Active Substance: MEDROXYPROGESTERONE
     Indication: ENDOMETRIAL CANCER
     Dosage: 200 MG, TID
     Route: 065

REACTIONS (3)
  - Secondary adrenocortical insufficiency [Recovered/Resolved]
  - Hyperandrogenism [Recovered/Resolved]
  - Cushing^s syndrome [Recovered/Resolved]
